FAERS Safety Report 4514756-0 (Version None)
Quarter: 2004Q4

REPORT INFORMATION
  Report Type: 
  Country: None (occurrence: None)
  Receive Date: 20041201
  Receipt Date: 20041119
  Transmission Date: 20050328
  Serious: Yes (Hospitalization)
  Sender: FDA-Public Use
  Company Number: US-JNJFOC-20041105637

PATIENT
  Sex: Female

DRUGS (8)
  1. INFLIXIMAB [Suspect]
     Indication: RHEUMATOID ARTHRITIS
     Route: 042
  2. METHOTREXATE [Concomitant]
  3. HUMIRA [Concomitant]
  4. ADVIL [Concomitant]
  5. LIPITOR [Concomitant]
  6. ACTONEL [Concomitant]
  7. BISOPROLOL FUMARATE [Concomitant]
  8. CALCIUM [Concomitant]

REACTIONS (4)
  - ABDOMINAL RIGIDITY [None]
  - NAUSEA [None]
  - VOMITING [None]
  - WHITE BLOOD CELL COUNT INCREASED [None]
